FAERS Safety Report 5649749-3 (Version None)
Quarter: 2008Q1

REPORT INFORMATION
  Report Type: 
  Country: None (occurrence: None)
  Receive Date: 20080304
  Receipt Date: 20080221
  Transmission Date: 20080703
  Serious: Yes (Other)
  Sender: FDA-Public Use
  Company Number: US-PFIZER INC-2008016663

PATIENT
  Sex: Male
  Weight: 102.27 kg

DRUGS (12)
  1. NEURONTIN [Suspect]
  2. LYRICA [Suspect]
     Indication: TRIGEMINAL NEURALGIA
     Route: 048
  3. ALL OTHER THERAPEUTIC PRODUCTS [Concomitant]
  4. WARFARIN SODIUM [Concomitant]
  5. DARIFENACIN [Concomitant]
  6. POTASSIUM CHLORIDE [Concomitant]
  7. LASIX [Concomitant]
  8. VYTORIN [Concomitant]
  9. ATIVAN [Concomitant]
  10. VITAMINS [Concomitant]
  11. PRILOSEC [Concomitant]
  12. MUCINEX [Concomitant]

REACTIONS (4)
  - CEREBROVASCULAR ACCIDENT [None]
  - DRUG INEFFECTIVE [None]
  - PNEUMONIA [None]
  - TRIGEMINAL NEURALGIA [None]
